FAERS Safety Report 21658177 (Version 1)
Quarter: 2022Q4

REPORT INFORMATION
  Report Type: Spontaneous
  Country: DE (occurrence: DE)
  Receive Date: 20221129
  Receipt Date: 20221129
  Transmission Date: 20230112
  Serious: Yes (Hospitalization)
  Sender: FDA-Public Use
  Company Number: None

PATIENT
  Age: 74 Year
  Sex: Female

DRUGS (7)
  1. SIMVASTATIN [Suspect]
     Active Substance: SIMVASTATIN
     Indication: Product used for unknown indication
     Dosage: 30 MG, PAUSED FOR THE TIME BEING
  2. VITAMIN B12 [Concomitant]
     Active Substance: CYANOCOBALAMIN
     Dosage: 1000 MICROGRAM, ONCE A WEEK
  3. HYDROCHLOROTHIAZIDE [Concomitant]
     Active Substance: HYDROCHLOROTHIAZIDE
     Dosage: 12.5 MG, 0.5-0-0-0, STRENGTH : 12.5 MG
  4. POLYETHYLENE GLYCOLS [Concomitant]
     Active Substance: POLYETHYLENE GLYCOLS
     Dosage: 1-0-1-0
  5. LOSARTAN [Concomitant]
     Active Substance: LOSARTAN
     Dosage: 50 MG, 0.5-0-0-0
  6. ASPIRIN [Concomitant]
     Active Substance: ASPIRIN
     Dosage: 100 MG, 1-0-0-0
  7. INSULIN LISPRO [Concomitant]
     Active Substance: INSULIN LISPRO
     Dosage: 50, 50 IE,  DEPENDING ON THE BZ

REACTIONS (6)
  - Product prescribing error [Unknown]
  - Musculoskeletal pain [Unknown]
  - Pain [Unknown]
  - Condition aggravated [Unknown]
  - Gait disturbance [Unknown]
  - Arthralgia [Unknown]
